FAERS Safety Report 9716050 (Version 1)
Quarter: 2013Q4

REPORT INFORMATION
  Report Type: Spontaneous
  Country: CA (occurrence: CA)
  Receive Date: 20131127
  Receipt Date: 20131127
  Transmission Date: 20140711
  Serious: Yes (Other)
  Sender: FDA-Public Use
  Company Number: CA-BAYER-2013-140339

PATIENT
  Age: 79 Year
  Sex: Male
  Weight: 84 kg

DRUGS (1)
  1. AVELOX [Suspect]
     Dosage: 400 MG, 1 EVERY 1 DAY
     Route: 048

REACTIONS (1)
  - Monoplegia [Recovered/Resolved]
